FAERS Safety Report 11240464 (Version 2)
Quarter: 2015Q3

REPORT INFORMATION
  Report Type: Report from Study
  Country: US (occurrence: US)
  Receive Date: 20150706
  Receipt Date: 20150916
  Transmission Date: 20151125
  Serious: Yes (Hospitalization, Other)
  Sender: FDA-Public Use
  Company Number: US-SA-2015SA081619

PATIENT
  Age: 48 Year
  Sex: Female

DRUGS (1)
  1. AUBAGIO [Suspect]
     Active Substance: TERIFLUNOMIDE
     Indication: MULTIPLE SCLEROSIS
     Route: 048
     Dates: start: 20150511, end: 20150901

REACTIONS (17)
  - Upper respiratory tract infection [Unknown]
  - Malaise [Unknown]
  - Alopecia [Unknown]
  - Cough [Unknown]
  - Tonsillar hypertrophy [Unknown]
  - Vomiting [Unknown]
  - Oropharyngeal pain [Unknown]
  - Urinary tract infection [Unknown]
  - Oral pain [Unknown]
  - Eating disorder [Unknown]
  - Menorrhagia [Unknown]
  - Decreased appetite [Unknown]
  - Colitis [Unknown]
  - Ageusia [Unknown]
  - Weight decreased [Unknown]
  - Night sweats [Unknown]
  - Dysphagia [Unknown]

NARRATIVE: CASE EVENT DATE: 2015
